APPROVED DRUG PRODUCT: PRAMIPEXOLE DIHYDROCHLORIDE
Active Ingredient: PRAMIPEXOLE DIHYDROCHLORIDE
Strength: 2.25MG
Dosage Form/Route: TABLET, EXTENDED RELEASE;ORAL
Application: A203615 | Product #001 | TE Code: AB
Applicant: ACTAVIS ELIZABETH LLC AN INDIRECT WHOLLY OWNED SUB OF TEVA PHARMACEUTICALS USA INC
Approved: Oct 14, 2016 | RLD: No | RS: No | Type: RX